FAERS Safety Report 7134022-7 (Version None)
Quarter: 2010Q4

REPORT INFORMATION
  Report Type: 
  Country: None (occurrence: None)
  Receive Date: 20101203
  Receipt Date: 20101123
  Transmission Date: 20110411
  Serious: Yes (Death)
  Sender: FDA-Public Use
  Company Number: GR-GENZYME-THYM-1002116

PATIENT
  Age: 46 Year
  Sex: Male

DRUGS (11)
  1. THYMOGLOBULIN [Suspect]
     Indication: APLASTIC ANAEMIA
     Dosage: 15 MG/KG, QD
     Route: 042
  2. THYMOGLOBULIN [Suspect]
     Route: 042
  3. CYCLOSPORINE [Concomitant]
     Indication: BONE MARROW CONDITIONING REGIMEN
     Dosage: 6 MG/KG, QD
  4. CYCLOSPORINE [Concomitant]
     Dosage: 0.5 MG/KG, Q4W
  5. METHYLPREDNISOLONE [Concomitant]
     Indication: PROPHYLAXIS
     Dosage: 2 MG/KG, QD
  6. RED BLOOD CELLS, CONCENTRATED [Concomitant]
     Indication: APLASTIC ANAEMIA
     Route: 042
  7. PLATELETS, CONCENTRATED [Concomitant]
     Indication: APLASTIC ANAEMIA
  8. NEUPOGEN [Concomitant]
     Indication: APLASTIC ANAEMIA
     Dosage: 400 MCG/M2, 3X/W
  9. ZOSYN [Concomitant]
     Indication: ANTIBIOTIC THERAPY
     Dosage: UNK
  10. MEROPENEM [Concomitant]
     Indication: ANTIBIOTIC THERAPY
  11. AMPHOTERICIN B [Concomitant]
     Indication: ANTIFUNGAL TREATMENT

REACTIONS (1)
  - HAEMORRHAGIC STROKE [None]
